FAERS Safety Report 7866924-8 (Version None)
Quarter: 2011Q4

REPORT INFORMATION
  Report Type: 
  Country: None (occurrence: None)
  Receive Date: 20111028
  Receipt Date: 20111024
  Transmission Date: 20120403
  Serious: Yes (Hospitalization, Other)
  Sender: FDA-Public Use
  Company Number: SE-PFIZER INC-2011148892

PATIENT
  Age: 79 Year
  Sex: Male
  Weight: 90.5 kg

DRUGS (8)
  1. BEHEPAN [Concomitant]
     Indication: BLOOD HOMOCYSTEINE INCREASED
     Dosage: UNK
  2. SERTRALINE [Concomitant]
     Dosage: UNK
  3. FOLIC ACID [Suspect]
     Indication: ANAEMIA VITAMIN B12 DEFICIENCY
     Dosage: 2 MG, 2X/DAY
     Route: 048
     Dates: start: 20110621, end: 20110628
  4. FOLIC ACID [Suspect]
     Indication: BLOOD HOMOCYSTEINE INCREASED
  5. NORVASC [Concomitant]
     Dosage: UNK
  6. FOLIC ACID [Suspect]
     Indication: MEMORY IMPAIRMENT
     Dosage: 1 MG, 2X/DAY
     Dates: end: 20110628
  7. FENANTOIN [Suspect]
     Dosage: 200 MG, 2X/DAY
     Route: 048
  8. TENORMIN [Concomitant]
     Dosage: UNK

REACTIONS (5)
  - CONFUSIONAL STATE [None]
  - HYPERSOMNIA [None]
  - DEMENTIA [None]
  - GENERAL PHYSICAL HEALTH DETERIORATION [None]
  - DIZZINESS [None]
